FAERS Safety Report 7107662-9 (Version None)
Quarter: 2010Q4

REPORT INFORMATION
  Report Type: 
  Country: None (occurrence: None)
  Receive Date: 20101117
  Receipt Date: 20101105
  Transmission Date: 20110411
  Serious: Yes (Hospitalization, Other)
  Sender: FDA-Public Use
  Company Number: US-ELI_LILLY_AND_COMPANY-US201008002522

PATIENT
  Sex: Female

DRUGS (6)
  1. FORTEO [Suspect]
     Indication: OSTEOPOROSIS
     Dosage: 20 UG, DAILY (1/D)
  2. ANTI-HYPERTENSIVE AGENT [Concomitant]
     Dosage: UNK, UNK
  3. PREDNISONE [Concomitant]
     Dosage: UNK, UNK
  4. SYNTHROID [Concomitant]
     Dosage: UNK, UNK
  5. ARAVA [Concomitant]
     Indication: RHEUMATOID ARTHRITIS
     Dosage: UNK, UNK
  6. PLAQUENIL [Concomitant]
     Indication: RHEUMATOID ARTHRITIS

REACTIONS (10)
  - BLOOD PRESSURE INCREASED [None]
  - FALL [None]
  - FEMUR FRACTURE [None]
  - GAIT DISTURBANCE [None]
  - IMPAIRED HEALING [None]
  - LIMB DISCOMFORT [None]
  - PAIN IN EXTREMITY [None]
  - PELVIC FRACTURE [None]
  - STAPHYLOCOCCAL INFECTION [None]
  - SURGERY [None]
